FAERS Safety Report 8172783-9 (Version None)
Quarter: 2012Q1

REPORT INFORMATION
  Report Type: 
  Country: None (occurrence: None)
  Receive Date: 20120229
  Receipt Date: 20120223
  Transmission Date: 20120608
  Serious: Yes (Hospitalization)
  Sender: FDA-Public Use
  Company Number: IT-NOVOPROD-344949

PATIENT
  Age: 96 Year
  Sex: Female

DRUGS (9)
  1. ALLOPURINOL [Concomitant]
  2. ENALAPRIL MALEATE [Concomitant]
     Dosage: 2 TAB, QD
     Route: 048
  3. FOLINA                             /00024201/ [Concomitant]
  4. LERCADIP                           /01366401/ [Concomitant]
  5. FERROGRAD C [Concomitant]
  6. LIPONORM                           /00001301/ [Concomitant]
  7. ASPIRIN [Concomitant]
     Dosage: 1 TAB, QD
     Route: 048
  8. REPAGLINIDE [Suspect]
     Indication: TYPE 2 DIABETES MELLITUS
     Dosage: 2 TAB, QD
     Route: 048
     Dates: start: 20100727
  9. LASIX [Concomitant]
     Dosage: 3 TAB, QD
     Route: 048

REACTIONS (1)
  - HYPOGLYCAEMIC COMA [None]
